FAERS Safety Report 18924827 (Version 8)
Quarter: 2024Q4

REPORT INFORMATION
  Report Type: Spontaneous
  Country: US (occurrence: US)
  Receive Date: 20210222
  Receipt Date: 20241016
  Transmission Date: 20250115
  Serious: Yes (Other)
  Sender: PFIZER
  Company Number: US-PFIZER INC-2021152766

PATIENT
  Age: 55 Year
  Sex: Female

DRUGS (1)
  1. XELJANZ XR [Suspect]
     Active Substance: TOFACITINIB CITRATE
     Dosage: 11 MG

REACTIONS (7)
  - Gait inability [Unknown]
  - Blindness [Unknown]
  - Foot deformity [Unknown]
  - Hand deformity [Unknown]
  - Arthralgia [Unknown]
  - Stress [Unknown]
  - Pain [Not Recovered/Not Resolved]
